FAERS Safety Report 7502620-4 (Version None)
Quarter: 2011Q2

REPORT INFORMATION
  Report Type: 
  Country: None (occurrence: None)
  Receive Date: 20110517
  Receipt Date: 20110505
  Transmission Date: 20111010
  Serious: Yes (Hospitalization)
  Sender: FDA-Public Use
  Company Number: 2011SP020741

PATIENT
  Sex: Female

DRUGS (1)
  1. IMPLANON [Suspect]
     Indication: CONTRACEPTION
     Dosage: 1 DF, SBDE
     Route: 059
     Dates: start: 20110101

REACTIONS (14)
  - LOSS OF CONSCIOUSNESS [None]
  - HAEMORRHAGE [None]
  - HEADACHE [None]
  - HYPOAESTHESIA [None]
  - MAJOR DEPRESSION [None]
  - IMPLANT SITE PAIN [None]
  - IMPAIRED WORK ABILITY [None]
  - SUICIDAL IDEATION [None]
  - IMPLANT SITE REACTION [None]
  - ABDOMINAL PAIN [None]
  - MOOD SWINGS [None]
  - MARITAL PROBLEM [None]
  - OEDEMA PERIPHERAL [None]
  - EYE PAIN [None]
